FAERS Safety Report 24846170 (Version 1)
Quarter: 2025Q1

REPORT INFORMATION
  Report Type: Spontaneous
  Country: US (occurrence: US)
  Receive Date: 20250115
  Receipt Date: 20250115
  Transmission Date: 20250408
  Serious: Yes (Hospitalization, Other)
  Sender: INCYTE
  Company Number: US-INCYTE CORPORATION-2025IN000329

PATIENT

DRUGS (2)
  1. JAKAFI [Suspect]
     Active Substance: RUXOLITINIB
     Indication: Diffuse large B-cell lymphoma
     Dosage: 10 MILLIGRAM, BID
     Route: 048
  2. ENOXAPARIN [Suspect]
     Active Substance: ENOXAPARIN
     Route: 065

REACTIONS (3)
  - Muscle haemorrhage [Unknown]
  - Sepsis [Unknown]
  - Off label use [Unknown]
